FAERS Safety Report 9123754 (Version 2)
Quarter: 2013Q2

REPORT INFORMATION
  Report Type: Spontaneous
  Country: CH (occurrence: CH)
  Receive Date: 20130227
  Receipt Date: 20130410
  Transmission Date: 20140414
  Serious: Yes (Hospitalization, Other)
  Sender: FDA-Public Use
  Company Number: CH-ROCHE-1195694

PATIENT
  Sex: Female

DRUGS (4)
  1. MABTHERA [Suspect]
     Indication: MANTLE CELL LYMPHOMA
     Route: 042
  2. VINCRISTIN [Concomitant]
     Indication: MANTLE CELL LYMPHOMA
     Route: 042
  3. CYCLOPHOSPHAMIDE [Concomitant]
     Indication: MANTLE CELL LYMPHOMA
     Route: 048
  4. PREDNISONE [Concomitant]
     Indication: MANTLE CELL LYMPHOMA
     Route: 048

REACTIONS (2)
  - Epilepsy [Recovered/Resolved]
  - Loss of consciousness [Recovered/Resolved]
